FAERS Safety Report 4524835-X (Version None)
Quarter: 2004Q4

REPORT INFORMATION
  Report Type: 
  Country: None (occurrence: None)
  Receive Date: 20041213
  Receipt Date: 20041130
  Transmission Date: 20050328
  Serious: Yes (Death)
  Sender: FDA-Public Use
  Company Number: SE-BRISTOL-MYERS SQUIBB COMPANY-12780466

PATIENT
  Age: 45 Year
  Sex: Male

DRUGS (2)
  1. ABILIFY [Suspect]
     Indication: PSYCHOTIC DISORDER
     Route: 048
     Dates: start: 20041007
  2. IMOVANE [Concomitant]
     Indication: SLEEP DISORDER
     Dates: start: 20041007

REACTIONS (3)
  - COMPLETED SUICIDE [None]
  - FEELING ABNORMAL [None]
  - HALLUCINATION, AUDITORY [None]
